FAERS Safety Report 7667329-5 (Version None)
Quarter: 2011Q3

REPORT INFORMATION
  Report Type: 
  Country: None (occurrence: None)
  Receive Date: 20110806
  Receipt Date: 20110610
  Transmission Date: 20111222
  Serious: No
  Sender: FDA-Public Use
  Company Number: US-ABBOTT-11P-163-0731492-00

PATIENT
  Sex: Male
  Weight: 106.24 kg

DRUGS (3)
  1. NIASPAN [Suspect]
     Dosage: 1000 MG, AT BEDTIME
  2. NIASPAN [Suspect]
     Indication: BLOOD CHOLESTEROL
     Dosage: 1 IN 1 AT BEDTIME
     Dates: start: 20090101
  3. UNKNOWN MEDICATION [Concomitant]
     Indication: BLOOD PRESSURE

REACTIONS (3)
  - ERYTHEMA [None]
  - PARAESTHESIA [None]
  - FLUSHING [None]
